FAERS Safety Report 5868591-1 (Version None)
Quarter: 2008Q3

REPORT INFORMATION
  Report Type: 
  Country: None (occurrence: None)
  Receive Date: 20080902
  Receipt Date: 20080902
  Transmission Date: 20090109
  Serious: Yes (Life-Threatening, Hospitalization, Other)
  Sender: FDA-Public Use
  Company Number: None

PATIENT
  Age: 39 Year
  Sex: Female
  Weight: 55.5 kg

DRUGS (1)
  1. TYSABRI [Suspect]
     Indication: MULTIPLE SCLEROSIS
     Dosage: 300 MG Q 4 WEEKS IV 19 DOSES
     Route: 042

REACTIONS (4)
  - ALTERED STATE OF CONSCIOUSNESS [None]
  - ELECTROENCEPHALOGRAM ABNORMAL [None]
  - LOSS OF CONSCIOUSNESS [None]
  - STATUS EPILEPTICUS [None]
